FAERS Safety Report 10922165 (Version 2)
Quarter: 2015Q2

REPORT INFORMATION
  Report Type: Spontaneous
  Country: US (occurrence: US)
  Receive Date: 20150317
  Receipt Date: 20150512
  Transmission Date: 20150821
  Serious: No
  Sender: FDA-Public Use
  Company Number: US-GLAXOSMITHKLINE-US2015029899

PATIENT
  Sex: Female

DRUGS (3)
  1. RISPERDAL [Concomitant]
     Active Substance: RISPERIDONE
  2. BUPROPION [Concomitant]
     Active Substance: BUPROPION
  3. LAMOTRIGINE TABLET [Suspect]
     Active Substance: LAMOTRIGINE
     Indication: BIPOLAR DISORDER
     Dosage: 200 MG, 1D
     Route: 048
     Dates: start: 2007

REACTIONS (3)
  - Dysgeusia [Not Recovered/Not Resolved]
  - Ill-defined disorder [Not Recovered/Not Resolved]
  - Medication error [Unknown]

NARRATIVE: CASE EVENT DATE: 2007
